FAERS Safety Report 4693497-3 (Version None)
Quarter: 2005Q2

REPORT INFORMATION
  Report Type: 
  Country: None (occurrence: None)
  Receive Date: 20050615
  Receipt Date: 20050531
  Transmission Date: 20051028
  Serious: Yes (Other)
  Sender: FDA-Public Use
  Company Number: US_0506118179

PATIENT
  Age: 61 Year
  Sex: Male

DRUGS (7)
  1. HUMATROPE [Suspect]
     Indication: BLOOD GROWTH HORMONE
     Dosage: 0.4 MG/1 DAY
     Dates: start: 19990801
  2. CORGARD [Concomitant]
  3. INDOMETHACIN [Concomitant]
  4. VIAGRA [Concomitant]
  5. LOZOL [Concomitant]
  6. AMOXICILLIN [Concomitant]
  7. TESTOSTERONE [Concomitant]

REACTIONS (1)
  - SQUAMOUS CELL CARCINOMA [None]
